FAERS Safety Report 7239901-8 (Version None)
Quarter: 2011Q1

REPORT INFORMATION
  Report Type: 
  Country: None (occurrence: None)
  Receive Date: 20110123
  Receipt Date: 20091201
  Transmission Date: 20110831
  Serious: No
  Sender: FDA-Public Use
  Company Number: US-MYLANLABS-2009S1020860

PATIENT
  Age: 79 Year
  Sex: Male

DRUGS (6)
  1. POTASSIUM CHLORIDE [Concomitant]
     Indication: BLOOD PRESSURE INCREASED
     Route: 048
  2. DILTIAZEM [Concomitant]
     Indication: BLOOD PRESSURE INCREASED
     Route: 048
  3. METOPROLOL [Concomitant]
     Indication: BLOOD PRESSURE INCREASED
     Route: 048
  4. CLARITIN /00917501/ [Concomitant]
     Indication: HYPERSENSITIVITY
     Route: 048
  5. ZANTAC [Concomitant]
     Indication: GASTROOESOPHAGEAL REFLUX DISEASE
     Route: 048
  6. FINASTERIDE [Suspect]
     Indication: PROSTATOMEGALY
     Route: 048
     Dates: start: 20091001

REACTIONS (2)
  - ABDOMINAL DISTENSION [None]
  - FLATULENCE [None]
